FAERS Safety Report 19370725 (Version 2)
Quarter: 2021Q2

REPORT INFORMATION
  Report Type: Report from Study
  Country: KR (occurrence: KR)
  Receive Date: 20210604
  Receipt Date: 20210610
  Transmission Date: 20210717
  Serious: Yes (Other)
  Sender: FDA-Public Use
  Company Number: KR-AMGEN-KORCT2021084309

PATIENT
  Age: 71 Year
  Sex: Male

DRUGS (127)
  1. FILGRASTIM [Suspect]
     Active Substance: FILGRASTIM
     Dosage: 300 UNK
     Route: 065
     Dates: start: 20111121, end: 20111121
  2. FILGRASTIM [Suspect]
     Active Substance: FILGRASTIM
     Dosage: 300 UNK
     Route: 065
     Dates: start: 20120206, end: 20120206
  3. DECITABINE. [Concomitant]
     Active Substance: DECITABINE
     Dosage: 20 UNK
     Route: 065
     Dates: start: 20120319, end: 20120323
  4. DECITABINE. [Concomitant]
     Active Substance: DECITABINE
     Dosage: 20 UNK
     Route: 065
     Dates: start: 20120709, end: 20120713
  5. DECITABINE. [Concomitant]
     Active Substance: DECITABINE
     Dosage: 20 UNK
     Route: 065
     Dates: start: 20120903, end: 20120907
  6. ACICLOVIR [Concomitant]
     Active Substance: ACYCLOVIR
     Indication: PRODUCT USED FOR UNKNOWN INDICATION
     Dosage: 400 MILLIGRAM
     Route: 065
     Dates: start: 20110107, end: 20110213
  7. ACICLOVIR [Concomitant]
     Active Substance: ACYCLOVIR
     Dosage: 400 MILLIGRAM
     Route: 065
     Dates: start: 20110314, end: 20110410
  8. CLOPERASTINE [Concomitant]
     Active Substance: CLOPERASTINE
     Dosage: 1250 MILLIGRAM
     Route: 065
     Dates: start: 20130502, end: 20130519
  9. CLOPERASTINE [Concomitant]
     Active Substance: CLOPERASTINE
     Dosage: 1250 MILLIGRAM
     Route: 065
     Dates: start: 20130603, end: 20130925
  10. FAT EMULSION NOS [Concomitant]
     Active Substance: EGG PHOSPHOLIPIDS\SAFFLOWER OIL\SOYBEAN OIL
     Dosage: 500 UNK
     Route: 065
     Dates: start: 20111024, end: 20111024
  11. FEXOFENADINE [Concomitant]
     Active Substance: FEXOFENADINE HYDROCHLORIDE
     Indication: PRODUCT USED FOR UNKNOWN INDICATION
     Dosage: 180 MILLIGRAM
     Route: 065
     Dates: start: 20110321, end: 20110327
  12. ITRACONAZOLE. [Concomitant]
     Active Substance: ITRACONAZOLE
     Dosage: 200 MILLIGRAM
     Route: 065
     Dates: start: 20110314, end: 20110410
  13. ITRACONAZOLE. [Concomitant]
     Active Substance: ITRACONAZOLE
     Dosage: 200 MILLIGRAM
     Route: 065
     Dates: start: 20120604, end: 20120708
  14. ITRACONAZOLE. [Concomitant]
     Active Substance: ITRACONAZOLE
     Dosage: 200 MILLIGRAM
     Route: 065
     Dates: start: 20130304, end: 20130414
  15. KETOTIFEN [Concomitant]
     Active Substance: KETOTIFEN
     Dosage: 2 MILLIGRAM
     Route: 065
     Dates: start: 20130502, end: 20130519
  16. KETOTIFEN [Concomitant]
     Active Substance: KETOTIFEN
     Dosage: 2 MILLIGRAM
     Route: 065
     Dates: start: 20130603
  17. LENOGRASTIM [Concomitant]
     Active Substance: LENOGRASTIM
     Dosage: 250 UNK
     Route: 065
     Dates: start: 20120927, end: 20120927
  18. MAGNESIUM HYDROXIDE. [Concomitant]
     Active Substance: MAGNESIUM HYDROXIDE
     Indication: PRODUCT USED FOR UNKNOWN INDICATION
     Dosage: 1500 UNK
     Route: 065
     Dates: start: 20110404, end: 20130403
  19. MEGESTROL [Concomitant]
     Active Substance: MEGESTROL
     Dosage: 5 UNK
     Route: 065
     Dates: start: 20130819, end: 20130825
  20. PARACETAMOL [Concomitant]
     Active Substance: ACETAMINOPHEN
     Indication: PRODUCT USED FOR UNKNOWN INDICATION
     Dosage: 1300 MILLIGRAM
     Route: 065
     Dates: start: 20110801, end: 20110801
  21. TRAMADOL/PARACETAMOL [Concomitant]
     Active Substance: ACETAMINOPHEN\TRAMADOL
     Dosage: 3 DOSAGE FORM
     Route: 065
     Dates: start: 20130304, end: 20130313
  22. FILGRASTIM [Suspect]
     Active Substance: FILGRASTIM
     Dosage: 300 UNK
     Route: 065
     Dates: start: 20111024, end: 20111024
  23. FILGRASTIM [Suspect]
     Active Substance: FILGRASTIM
     Dosage: 300 UNK
     Route: 065
     Dates: start: 20120102, end: 20120102
  24. FILGRASTIM [Suspect]
     Active Substance: FILGRASTIM
     Dosage: 300 UNK
     Route: 065
     Dates: start: 20130502, end: 20130502
  25. DECITABINE. [Concomitant]
     Active Substance: DECITABINE
     Dosage: 20 UNK
     Route: 065
     Dates: start: 20110411, end: 20110415
  26. DECITABINE. [Concomitant]
     Active Substance: DECITABINE
     Dosage: 20 UNK
     Route: 065
     Dates: start: 20110704, end: 20110708
  27. DECITABINE. [Concomitant]
     Active Substance: DECITABINE
     Dosage: 20 UNK
     Route: 065
     Dates: start: 11000905, end: 20110909
  28. DECITABINE. [Concomitant]
     Active Substance: DECITABINE
     Dosage: 20 UNK
     Route: 065
     Dates: start: 20120109, end: 20120113
  29. CLOPERASTINE [Concomitant]
     Active Substance: CLOPERASTINE
     Dosage: 625 MILLIGRAM
     Route: 065
     Dates: start: 20111219, end: 20120101
  30. CLOPERASTINE [Concomitant]
     Active Substance: CLOPERASTINE
     Dosage: 1250 MILLIGRAM
     Route: 065
     Dates: start: 20130415, end: 20130424
  31. FAT EMULSION NOS [Concomitant]
     Active Substance: EGG PHOSPHOLIPIDS\SAFFLOWER OIL\SOYBEAN OIL
     Dosage: 500 UNK
     Route: 065
     Dates: start: 20110926, end: 20110926
  32. MEGESTROL [Concomitant]
     Active Substance: MEGESTROL
     Dosage: 5 UNK
     Route: 065
     Dates: start: 20130617, end: 20130630
  33. MEGESTROL [Concomitant]
     Active Substance: MEGESTROL
     Dosage: 5 UNK
     Route: 065
     Dates: start: 20130902, end: 20130911
  34. FILGRASTIM [Suspect]
     Active Substance: FILGRASTIM
     Dosage: 300 UNK
     Route: 065
     Dates: start: 20110307, end: 20110307
  35. FILGRASTIM [Suspect]
     Active Substance: FILGRASTIM
     Dosage: 300 UNK
     Route: 065
     Dates: start: 20110404, end: 20110404
  36. DECITABINE. [Concomitant]
     Active Substance: DECITABINE
     Dosage: 20 UNK
     Route: 065
     Dates: start: 20120607, end: 20120608
  37. ACICLOVIR [Concomitant]
     Active Substance: ACYCLOVIR
     Dosage: 400 MILLIGRAM
     Route: 065
     Dates: start: 20110224, end: 20110313
  38. ACICLOVIR [Concomitant]
     Active Substance: ACYCLOVIR
     Dosage: 400 MILLIGRAM
     Route: 065
     Dates: start: 20110411, end: 20110508
  39. ACICLOVIR [Concomitant]
     Active Substance: ACYCLOVIR
     Dosage: 400 MILLIGRAM
     Route: 065
     Dates: start: 20120109, end: 20120212
  40. ACICLOVIR [Concomitant]
     Active Substance: ACYCLOVIR
     Dosage: 400 MILLIGRAM
     Route: 065
     Dates: start: 20130502, end: 20130526
  41. CLOPERASTINE [Concomitant]
     Active Substance: CLOPERASTINE
     Dosage: 1250 MILLIGRAM
     Route: 065
     Dates: start: 20120102, end: 20130403
  42. DESONIDE. [Concomitant]
     Active Substance: DESONIDE
     Indication: PRODUCT USED FOR UNKNOWN INDICATION
     Dosage: 120 UNK
     Route: 065
     Dates: start: 20110314, end: 20110320
  43. FAT EMULSION NOS [Concomitant]
     Active Substance: EGG PHOSPHOLIPIDS\SAFFLOWER OIL\SOYBEAN OIL
     Dosage: 500 UNK
     Route: 065
     Dates: start: 20110905, end: 20110905
  44. FAT EMULSION NOS [Concomitant]
     Active Substance: EGG PHOSPHOLIPIDS\SAFFLOWER OIL\SOYBEAN OIL
     Dosage: 500 UNK
     Route: 065
     Dates: start: 20110919, end: 20110919
  45. ITRACONAZOLE. [Concomitant]
     Active Substance: ITRACONAZOLE
     Indication: PRODUCT USED FOR UNKNOWN INDICATION
     Dosage: 20 UNK
     Route: 065
     Dates: start: 20110117, end: 20110213
  46. ITRACONAZOLE. [Concomitant]
     Active Substance: ITRACONAZOLE
     Dosage: 200 MILLIGRAM
     Route: 065
     Dates: start: 20110509, end: 20110606
  47. ITRACONAZOLE. [Concomitant]
     Active Substance: ITRACONAZOLE
     Dosage: 200 MILLIGRAM
     Route: 065
     Dates: start: 20130902, end: 20130911
  48. KETOTIFEN [Concomitant]
     Active Substance: KETOTIFEN
     Dosage: 2 MILLIGRAM
     Route: 065
     Dates: start: 20130415, end: 20130424
  49. LENOGRASTIM [Concomitant]
     Active Substance: LENOGRASTIM
     Dosage: 250 UNK
     Route: 065
     Dates: start: 20130729, end: 20130729
  50. MAGNESIUM HYDROXIDE. [Concomitant]
     Active Substance: MAGNESIUM HYDROXIDE
     Dosage: 1500 UNK
     Route: 065
     Dates: start: 20130502, end: 20130519
  51. MAGNESIUM HYDROXIDE. [Concomitant]
     Active Substance: MAGNESIUM HYDROXIDE
     Dosage: 1500 UNK
     Route: 065
     Dates: start: 20130603
  52. MEGESTROL [Concomitant]
     Active Substance: MEGESTROL
     Dosage: 20 UNK
     Route: 065
     Dates: start: 20110825, end: 20110918
  53. FILGRASTIM [Suspect]
     Active Substance: FILGRASTIM
     Dosage: 300 UNK
     Route: 065
     Dates: start: 20110704, end: 20110704
  54. DECITABINE. [Concomitant]
     Active Substance: DECITABINE
     Dosage: 20 UNK
     Route: 065
     Dates: start: 20110509, end: 20110513
  55. DECITABINE. [Concomitant]
     Active Substance: DECITABINE
     Dosage: 20 UNK
     Route: 065
     Dates: start: 20110607, end: 20110611
  56. DECITABINE. [Concomitant]
     Active Substance: DECITABINE
     Dosage: 20 UNK
     Route: 065
     Dates: start: 20111107, end: 20111111
  57. DECITABINE. [Concomitant]
     Active Substance: DECITABINE
     Dosage: 20 UNK
     Route: 065
     Dates: start: 20120423, end: 20120427
  58. DECITABINE. [Concomitant]
     Active Substance: DECITABINE
     Dosage: 20 UNK
     Route: 065
     Dates: start: 20120604, end: 20120605
  59. ACICLOVIR [Concomitant]
     Active Substance: ACYCLOVIR
     Dosage: 400 MILLIGRAM
     Route: 065
     Dates: start: 20110808, end: 20110904
  60. FAT EMULSION NOS [Concomitant]
     Active Substance: EGG PHOSPHOLIPIDS\SAFFLOWER OIL\SOYBEAN OIL
     Indication: PRODUCT USED FOR UNKNOWN INDICATION
     Dosage: 500 UNK
     Route: 065
     Dates: start: 20110801, end: 20110801
  61. ITRACONAZOLE. [Concomitant]
     Active Substance: ITRACONAZOLE
     Dosage: 400 MILLIGRAM
     Route: 065
     Dates: start: 20130415, end: 20130424
  62. LENOGRASTIM [Concomitant]
     Active Substance: LENOGRASTIM
     Dosage: 250 UNK
     Route: 065
     Dates: start: 20130617, end: 20130617
  63. MEGESTROL [Concomitant]
     Active Substance: MEGESTROL
     Indication: PRODUCT USED FOR UNKNOWN INDICATION
     Dosage: 20 UNK
     Route: 065
     Dates: start: 20110808, end: 20110815
  64. FILGRASTIM [Suspect]
     Active Substance: FILGRASTIM
     Dosage: 300 UNK
     Route: 065
     Dates: start: 20110207, end: 20110207
  65. FILGRASTIM [Suspect]
     Active Substance: FILGRASTIM
     Dosage: 300 UNK
     Route: 065
     Dates: start: 20110214, end: 20110214
  66. FILGRASTIM [Suspect]
     Active Substance: FILGRASTIM
     Dosage: 300 UNK
     Route: 065
     Dates: start: 20111219, end: 20111219
  67. FILGRASTIM [Suspect]
     Active Substance: FILGRASTIM
     Dosage: 300 UNK
     Route: 065
     Dates: start: 20120517, end: 20120517
  68. FILGRASTIM [Suspect]
     Active Substance: FILGRASTIM
     Dosage: 300 UNK
     Route: 065
     Dates: start: 20121203, end: 20121203
  69. DECITABINE. [Concomitant]
     Active Substance: DECITABINE
     Dosage: 20 UNK
     Route: 065
     Dates: start: 20110314, end: 20110318
  70. DECITABINE. [Concomitant]
     Active Substance: DECITABINE
     Dosage: 20 UNK
     Route: 065
     Dates: start: 20110808, end: 20110812
  71. ACICLOVIR [Concomitant]
     Active Substance: ACYCLOVIR
     Dosage: 400 MILLIGRAM
     Route: 065
     Dates: start: 20130304, end: 20130414
  72. ACICLOVIR [Concomitant]
     Active Substance: ACYCLOVIR
     Dosage: 400 MILLIGRAM
     Route: 065
     Dates: start: 20130715, end: 20130901
  73. FAT EMULSION NOS [Concomitant]
     Active Substance: EGG PHOSPHOLIPIDS\SAFFLOWER OIL\SOYBEAN OIL
     Dosage: 500 UNK
     Route: 065
     Dates: start: 20110808, end: 20110808
  74. ITRACONAZOLE. [Concomitant]
     Active Substance: ITRACONAZOLE
     Dosage: 200 MILLIGRAM
     Route: 065
     Dates: start: 20110607, end: 20110703
  75. ITRACONAZOLE. [Concomitant]
     Active Substance: ITRACONAZOLE
     Dosage: 200 MILLIGRAM
     Route: 065
     Dates: start: 20120319, end: 20120422
  76. LENOGRASTIM [Concomitant]
     Active Substance: LENOGRASTIM
     Dosage: 250 UNK
     Route: 065
     Dates: start: 20130912, end: 20130912
  77. MEGESTROL [Concomitant]
     Active Substance: MEGESTROL
     Dosage: 40 UNK
     Route: 065
     Dates: start: 20121105, end: 20121231
  78. PREDNICARBATE. [Concomitant]
     Active Substance: PREDNICARBATE
     Indication: PRODUCT USED FOR UNKNOWN INDICATION
     Dosage: UNK
     Route: 065
     Dates: start: 20110321, end: 20110327
  79. FILGRASTIM [Suspect]
     Active Substance: FILGRASTIM
     Dosage: 300 UNK
     Route: 065
     Dates: start: 20120126, end: 20120126
  80. FILGRASTIM [Suspect]
     Active Substance: FILGRASTIM
     Dosage: 300 UNK
     Route: 065
     Dates: start: 20120227, end: 20120227
  81. FILGRASTIM [Suspect]
     Active Substance: FILGRASTIM
     Dosage: 300 UNK
     Route: 065
     Dates: start: 20121217, end: 20121217
  82. DECITABINE. [Concomitant]
     Active Substance: DECITABINE
     Dosage: 20 UNK
     Route: 065
     Dates: start: 20110214, end: 20110218
  83. DECITABINE. [Concomitant]
     Active Substance: DECITABINE
     Dosage: 20 UNK
     Route: 065
     Dates: start: 20111205, end: 20111209
  84. ACICLOVIR [Concomitant]
     Active Substance: ACYCLOVIR
     Dosage: 400 MILLIGRAM
     Route: 065
     Dates: start: 20110509, end: 20110606
  85. ACICLOVIR [Concomitant]
     Active Substance: ACYCLOVIR
     Dosage: 400 MILLIGRAM
     Route: 065
     Dates: start: 13130415, end: 20130424
  86. ACICLOVIR [Concomitant]
     Active Substance: ACYCLOVIR
     Dosage: 400 MILLIGRAM
     Route: 065
     Dates: start: 20130902, end: 20131013
  87. ITRACONAZOLE. [Concomitant]
     Active Substance: ITRACONAZOLE
     Dosage: 20 UNK
     Route: 065
     Dates: start: 20110117, end: 20110213
  88. ITRACONAZOLE. [Concomitant]
     Active Substance: ITRACONAZOLE
     Dosage: 200 MILLIGRAM
     Route: 065
     Dates: start: 20110411, end: 20110508
  89. ITRACONAZOLE. [Concomitant]
     Active Substance: ITRACONAZOLE
     Dosage: 200 MILLIGRAM
     Route: 065
     Dates: start: 20120109, end: 20120212
  90. ITRACONAZOLE. [Concomitant]
     Active Substance: ITRACONAZOLE
     Dosage: 200 MILLIGRAM
     Route: 065
     Dates: start: 20130128, end: 20130303
  91. ITRACONAZOLE. [Concomitant]
     Active Substance: ITRACONAZOLE
     Dosage: 400 MILLIGRAM
     Route: 065
     Dates: start: 20130603, end: 20130714
  92. LENOGRASTIM [Concomitant]
     Active Substance: LENOGRASTIM
     Indication: PRODUCT USED FOR UNKNOWN INDICATION
     Dosage: 250 UNK
     Route: 065
     Dates: start: 20120312, end: 20120312
  93. MEGESTROL [Concomitant]
     Active Substance: MEGESTROL
     Dosage: 5 UNK
     Route: 065
     Dates: start: 20130527, end: 20130602
  94. SODIUM PHOSPHATE [Concomitant]
     Active Substance: SODIUM PHOSPHATE
     Indication: PRODUCT USED FOR UNKNOWN INDICATION
     Dosage: 90 UNK
     Route: 065
     Dates: start: 20110718, end: 20110718
  95. TRAMADOL/PARACETAMOL [Concomitant]
     Active Substance: ACETAMINOPHEN\TRAMADOL
     Dosage: 3 DOSAGE FORM
     Route: 065
     Dates: start: 20130207, end: 20130213
  96. FILGRASTIM [Suspect]
     Active Substance: FILGRASTIM
     Dosage: 300 UNK
     Route: 065
     Dates: start: 20110502, end: 20110502
  97. FILGRASTIM [Suspect]
     Active Substance: FILGRASTIM
     Dosage: 300 UNK
     Route: 065
     Dates: start: 20110509, end: 20110509
  98. FILGRASTIM [Suspect]
     Active Substance: FILGRASTIM
     Dosage: 300 UNK
     Route: 065
     Dates: start: 20110607, end: 20110607
  99. FILGRASTIM [Suspect]
     Active Substance: FILGRASTIM
     Dosage: 300 UNK
     Route: 065
     Dates: start: 20130404, end: 20130404
  100. DECITABINE. [Concomitant]
     Active Substance: DECITABINE
     Dosage: 20 UNK
     Route: 065
     Dates: start: 20111004, end: 20111007
  101. DECITABINE. [Concomitant]
     Active Substance: DECITABINE
     Dosage: 20 UNK
     Route: 065
     Dates: start: 20130906, end: 20130906
  102. ACICLOVIR [Concomitant]
     Active Substance: ACYCLOVIR
     Dosage: 400 MILLIGRAM
     Route: 065
     Dates: start: 20110704, end: 20110807
  103. ACICLOVIR [Concomitant]
     Active Substance: ACYCLOVIR
     Dosage: 400 MILLIGRAM
     Route: 065
     Dates: start: 20120319, end: 20120422
  104. DICLOFENAC [Concomitant]
     Active Substance: DICLOFENAC
     Indication: PRODUCT USED FOR UNKNOWN INDICATION
     Dosage: 75 MILLIGRAM
     Route: 065
     Dates: start: 20130129, end: 20130129
  105. FAT EMULSION NOS [Concomitant]
     Active Substance: EGG PHOSPHOLIPIDS\SAFFLOWER OIL\SOYBEAN OIL
     Dosage: 500 UNK
     Route: 065
     Dates: start: 20111004, end: 20111004
  106. ITRACONAZOLE. [Concomitant]
     Active Substance: ITRACONAZOLE
     Dosage: 200 MILLIGRAM
     Route: 065
     Dates: start: 20120213, end: 20120318
  107. ITRACONAZOLE. [Concomitant]
     Active Substance: ITRACONAZOLE
     Dosage: 200 MILLIGRAM
     Route: 065
     Dates: start: 20120423, end: 20120603
  108. LENOGRASTIM [Concomitant]
     Active Substance: LENOGRASTIM
     Dosage: 250 UNK
     Route: 065
     Dates: start: 20120625, end: 20120625
  109. TRAMADOL/PARACETAMOL [Concomitant]
     Active Substance: ACETAMINOPHEN\TRAMADOL
     Indication: PRODUCT USED FOR UNKNOWN INDICATION
     Dosage: 3 DOSAGE FORM
     Route: 065
     Dates: start: 20130129, end: 20130204
  110. FILGRASTIM [Suspect]
     Active Substance: FILGRASTIM
     Indication: PRODUCT USED FOR UNKNOWN INDICATION
     Dosage: 300 UNK
     Route: 065
     Dates: start: 20110124, end: 20110124
  111. FILGRASTIM [Suspect]
     Active Substance: FILGRASTIM
     Dosage: 300 UNK
     Route: 065
     Dates: start: 20110411, end: 20110411
  112. FILGRASTIM [Suspect]
     Active Substance: FILGRASTIM
     Dosage: 300 UNK
     Route: 065
     Dates: start: 20110613, end: 20110613
  113. FILGRASTIM [Suspect]
     Active Substance: FILGRASTIM
     Dosage: 300 UNK
     Route: 065
     Dates: start: 20110718, end: 20110718
  114. FILGRASTIM [Suspect]
     Active Substance: FILGRASTIM
     Dosage: 300 UNK
     Route: 065
     Dates: start: 20111205, end: 20111205
  115. FILGRASTIM [Suspect]
     Active Substance: FILGRASTIM
     Dosage: 300 UNK
     Route: 065
     Dates: start: 20130513, end: 20130513
  116. DECITABINE. [Concomitant]
     Active Substance: DECITABINE
     Indication: PRODUCT USED FOR UNKNOWN INDICATION
     Dosage: 20 UNK
     Route: 065
     Dates: start: 20110117, end: 20110121
  117. DECITABINE. [Concomitant]
     Active Substance: DECITABINE
     Dosage: 20 UNK
     Route: 065
     Dates: start: 20120213, end: 20120217
  118. DECITABINE. [Concomitant]
     Active Substance: DECITABINE
     Dosage: 20 UNK
     Route: 065
     Dates: start: 20120806, end: 20120810
  119. ACICLOVIR [Concomitant]
     Active Substance: ACYCLOVIR
     Dosage: 400 MILLIGRAM
     Route: 065
     Dates: start: 20120709, end: 20120805
  120. ACICLOVIR [Concomitant]
     Active Substance: ACYCLOVIR
     Dosage: 400 MILLIGRAM
     Route: 065
     Dates: start: 20130603, end: 20130714
  121. CLOPERASTINE [Concomitant]
     Active Substance: CLOPERASTINE
     Indication: PRODUCT USED FOR UNKNOWN INDICATION
     Dosage: 24 UNK
     Route: 065
     Dates: start: 20110808, end: 20110815
  122. FAT EMULSION NOS [Concomitant]
     Active Substance: EGG PHOSPHOLIPIDS\SAFFLOWER OIL\SOYBEAN OIL
     Dosage: 500 UNK
     Route: 065
     Dates: start: 20111017, end: 20111017
  123. HYDROCORTISONE. [Concomitant]
     Active Substance: HYDROCORTISONE
     Indication: PRODUCT USED FOR UNKNOWN INDICATION
     Dosage: 60 UNK
     Route: 065
     Dates: start: 20110321, end: 20110327
  124. KETOTIFEN [Concomitant]
     Active Substance: KETOTIFEN
     Indication: PRODUCT USED FOR UNKNOWN INDICATION
     Dosage: 2 MILLIGRAM
     Route: 065
     Dates: start: 20110207, end: 20130403
  125. LENOGRASTIM [Concomitant]
     Active Substance: LENOGRASTIM
     Dosage: 250 UNK
     Route: 065
     Dates: start: 20130214, end: 20130214
  126. LENOGRASTIM [Concomitant]
     Active Substance: LENOGRASTIM
     Dosage: 250 UNK
     Route: 065
     Dates: start: 20130819, end: 20130819
  127. MAGNESIUM HYDROXIDE. [Concomitant]
     Active Substance: MAGNESIUM HYDROXIDE
     Dosage: 1500 UNK
     Route: 065
     Dates: start: 20130415, end: 20130424

REACTIONS (10)
  - Dyspnoea [Recovered/Resolved]
  - Application site pain [Recovered/Resolved]
  - Constipation [Recovered/Resolved]
  - Dizziness [Recovered/Resolved]
  - Fatigue [Recovered/Resolved]
  - Neutropenia [Recovered/Resolved]
  - Pain [Recovered/Resolved]
  - Asthenia [Recovered/Resolved]
  - Large intestine polyp [Recovered/Resolved]
  - Pruritus [Recovered/Resolved]

NARRATIVE: CASE EVENT DATE: 20110207
